FAERS Safety Report 13051497 (Version 2)
Quarter: 2017Q1

REPORT INFORMATION
  Report Type: Spontaneous
  Country: IT (occurrence: IT)
  Receive Date: 20161221
  Receipt Date: 20170103
  Transmission Date: 20170428
  Serious: Yes (Life-Threatening)
  Sender: FDA-Public Use
  Company Number: IT-TEVA-721135ACC

PATIENT
  Age: 37 Year
  Sex: Male

DRUGS (2)
  1. LORMETAZEPAM [Interacting]
     Active Substance: LORMETAZEPAM
     Indication: PRODUCT USED FOR UNKNOWN INDICATION
     Dosage: UNKNOWN
  2. DIAZEPAM. [Suspect]
     Active Substance: DIAZEPAM
     Indication: PRODUCT USED FOR UNKNOWN INDICATION
     Dosage: UNKNOWN

REACTIONS (5)
  - Self-medication [Recovering/Resolving]
  - Suicide attempt [Unknown]
  - Labelled drug-drug interaction medication error [Unknown]
  - Somnolence [Recovering/Resolving]
  - Wrong technique in product usage process [Unknown]
